FAERS Safety Report 20159416 (Version 5)
Quarter: 2022Q1

REPORT INFORMATION
  Report Type: Report from Study
  Country: ES (occurrence: ES)
  Receive Date: 20211208
  Receipt Date: 20220330
  Transmission Date: 20220424
  Serious: Yes (Death, Hospitalization)
  Sender: FDA-Public Use
  Company Number: ES-ABBVIE-21K-144-4188168-00

PATIENT
  Age: 87 Year
  Sex: Male

DRUGS (2)
  1. CARBIDOPA\LEVODOPA [Suspect]
     Active Substance: CARBIDOPA\LEVODOPA
     Indication: Parkinson^s disease
     Route: 050
     Dates: start: 20200115
  2. CARBIDOPA\LEVODOPA [Suspect]
     Active Substance: CARBIDOPA\LEVODOPA

REACTIONS (10)
  - Urinary tract infection [Fatal]
  - Asthenia [Fatal]
  - Unresponsive to stimuli [Not Recovered/Not Resolved]
  - Condition aggravated [Unknown]
  - Mobility decreased [Unknown]
  - Pneumonia [Recovering/Resolving]
  - Bedridden [Unknown]
  - Cognitive disorder [Unknown]
  - Respiratory tract infection [Unknown]
  - Dependence [Unknown]

NARRATIVE: CASE EVENT DATE: 20211202
